FAERS Safety Report 12612311 (Version 1)
Quarter: 2016Q3

REPORT INFORMATION
  Report Type: Spontaneous
  Country: PL (occurrence: PL)
  Receive Date: 20160801
  Receipt Date: 20160801
  Transmission Date: 20161109
  Serious: Yes (Other)
  Sender: FDA-Public Use
  Company Number: PL-009507513-1607POL012252

PATIENT
  Age: 22 Year
  Sex: Female

DRUGS (5)
  1. MYCOPHENOLATE MOFETIL. [Concomitant]
     Active Substance: MYCOPHENOLATE MOFETIL
     Indication: IMMUNOSUPPRESSION
  2. PEGINTERFERON ALFA-2A [Suspect]
     Active Substance: PEGINTERFERON ALFA-2A
     Dosage: 180 MICROGRAM, UNK
  3. TACROLIMUS. [Concomitant]
     Active Substance: TACROLIMUS
     Indication: IMMUNOSUPPRESSION
  4. PREDNISONE. [Concomitant]
     Active Substance: PREDNISONE
     Indication: IMMUNOSUPPRESSION
  5. RIBAVIRIN. [Suspect]
     Active Substance: RIBAVIRIN
     Indication: HEPATITIS C
     Dosage: 600 MG BID
     Route: 048

REACTIONS (1)
  - Pancytopenia [Unknown]
